FAERS Safety Report 9346797 (Version 1)
Quarter: 2013Q2

REPORT INFORMATION
  Report Type: Report from Study
  Country: CA (occurrence: CA)
  Receive Date: 20130613
  Receipt Date: 20130613
  Transmission Date: 20140414
  Serious: Yes (Hospitalization, Other)
  Sender: FDA-Public Use
  Company Number: CA-ROCHE-1232347

PATIENT
  Age: 50 Year
  Sex: Male
  Weight: 87.5 kg

DRUGS (5)
  1. PEGASYS [Suspect]
     Indication: HEPATITIS C
     Route: 058
     Dates: start: 20130409
  2. PEGASYS [Suspect]
     Route: 058
     Dates: start: 20130409
  3. RIBAVIRIN [Suspect]
     Indication: HEPATITIS C
     Route: 048
     Dates: start: 20130120
  4. RIBAVIRIN [Suspect]
     Route: 048
     Dates: start: 20130409
  5. INCIVEK [Suspect]
     Indication: HEPATITIS C
     Route: 065

REACTIONS (9)
  - Pancreatitis acute [Not Recovered/Not Resolved]
  - Blood bilirubin increased [Unknown]
  - Alanine aminotransferase increased [Unknown]
  - Aspartate aminotransferase increased [Unknown]
  - Lipase increased [Unknown]
  - Blood lactate dehydrogenase increased [Unknown]
  - Blood alkaline phosphatase increased [Unknown]
  - Diarrhoea [Not Recovered/Not Resolved]
  - Mood swings [Not Recovered/Not Resolved]
